FAERS Safety Report 15782480 (Version 1)
Quarter: 2019Q1

REPORT INFORMATION
  Report Type: Spontaneous
  Country: GB (occurrence: GB)
  Receive Date: 20190102
  Receipt Date: 20190102
  Transmission Date: 20190417
  Serious: Yes (Hospitalization)
  Sender: FDA-Public Use
  Company Number: GB-PFIZER INC-2018533362

PATIENT
  Age: 88 Year
  Sex: Female

DRUGS (8)
  1. LINEZOLID. [Suspect]
     Active Substance: LINEZOLID
     Indication: DEVICE RELATED INFECTION
     Dosage: 1200 MG, 1X/DAY
     Route: 048
     Dates: start: 20181102, end: 20181112
  2. RAMIPRIL. [Concomitant]
     Active Substance: RAMIPRIL
  3. DAPTOMYCIN. [Concomitant]
     Active Substance: DAPTOMYCIN
  4. SIMVASTATIN. [Concomitant]
     Active Substance: SIMVASTATIN
  5. RIVAROXABAN [Suspect]
     Active Substance: RIVAROXABAN
  6. ERTAPENEM SODIUM [Concomitant]
     Active Substance: ERTAPENEM SODIUM
  7. PARACETAMOL [Concomitant]
     Active Substance: ACETAMINOPHEN
  8. AMLODIPINE [Concomitant]
     Active Substance: AMLODIPINE BESYLATE

REACTIONS (5)
  - Seizure like phenomena [Unknown]
  - Hallucination [Unknown]
  - Epistaxis [Unknown]
  - Confusional state [Recovered/Resolved]
  - Hypertension [Recovered/Resolved]

NARRATIVE: CASE EVENT DATE: 20181107
